FAERS Safety Report 7452332-0 (Version None)
Quarter: 2011Q2

REPORT INFORMATION
  Report Type: 
  Country: None (occurrence: None)
  Receive Date: 20110502
  Receipt Date: 20110413
  Transmission Date: 20111010
  Serious: Yes (Hospitalization, Other)
  Sender: FDA-Public Use
  Company Number: US-BAYER-2010-005916

PATIENT
  Age: 58 Year
  Sex: Male
  Weight: 85.714 kg

DRUGS (21)
  1. TRASYLOL [Suspect]
     Indication: IMPLANTABLE DEFIBRILLATOR INSERTION
  2. TRASYLOL [Suspect]
  3. LEVOPHED [Concomitant]
     Dosage: UNK
     Dates: start: 20041127
  4. ZOLOFT [Concomitant]
  5. HEPARIN [Concomitant]
     Dosage: UNK
     Dates: start: 20041127
  6. GENTAMICIN [Concomitant]
  7. TRASYLOL [Suspect]
     Indication: HEART TRANSPLANT
     Dosage: UNK
     Route: 042
     Dates: start: 20041127, end: 20041127
  8. TACROLIMUS [Concomitant]
     Indication: IMMUNOSUPPRESSION
  9. TRASYLOL [Suspect]
     Indication: VENTRICULAR ASSIST DEVICE INSERTION
  10. TRASYLOL [Suspect]
     Indication: CARDIAC PACEMAKER REMOVAL
  11. RED BLOOD CELLS [Concomitant]
     Dosage: 1 UNIT
  12. ASPIRIN [Concomitant]
  13. PROTAMINE SULFATE [Concomitant]
     Dosage: UNK
     Dates: start: 20041127
  14. NOREPINEPHRINE BITARTRATE [Concomitant]
     Dosage: UNK
     Dates: start: 20041127
  15. NORVASC [Concomitant]
  16. FRESH FROZEN PLASMA [Concomitant]
     Dosage: 4 UNITS
  17. PLATELETS [Concomitant]
     Dosage: 1 UNIT
  18. AMIODARONE [Concomitant]
  19. METOPROLOL SUCCINATE [Concomitant]
  20. POTASSIUM [Concomitant]
  21. VASOPRESSIN [Concomitant]
     Dosage: UNK
     Dates: start: 20041127

REACTIONS (11)
  - RENAL INJURY [None]
  - RENAL FAILURE ACUTE [None]
  - STRESS [None]
  - RENAL FAILURE [None]
  - ANXIETY [None]
  - RENAL IMPAIRMENT [None]
  - PAIN [None]
  - UNEVALUABLE EVENT [None]
  - EMOTIONAL DISORDER [None]
  - FEAR [None]
  - INJURY [None]
